FAERS Safety Report 4621053-1 (Version None)
Quarter: 2005Q1

REPORT INFORMATION
  Report Type: 
  Country: None (occurrence: None)
  Receive Date: 20050328
  Receipt Date: 20040720
  Transmission Date: 20050727
  Serious: Yes (Hospitalization, Other)
  Sender: FDA-Public Use
  Company Number: US-MERCK-0407USA01744

PATIENT
  Age: 41 Year
  Sex: Male
  Weight: 143 kg

DRUGS (2)
  1. VIOXX [Suspect]
     Indication: PAIN IN EXTREMITY
     Route: 048
     Dates: start: 20010425, end: 20020103
  2. VIOXX [Suspect]
     Route: 048
     Dates: start: 20010425, end: 20020103

REACTIONS (15)
  - BLOOD CREATININE INCREASED [None]
  - BRONCHITIS [None]
  - CARDIAC FAILURE CONGESTIVE [None]
  - CARDIAC MURMUR [None]
  - CARDIOGENIC SHOCK [None]
  - CARDIOMYOPATHY [None]
  - CORONARY ARTERY DISEASE [None]
  - IRRITABLE BOWEL SYNDROME [None]
  - MITRAL VALVE INCOMPETENCE [None]
  - MYOCARDIAL INFARCTION [None]
  - OEDEMA PERIPHERAL [None]
  - PERICARDITIS [None]
  - PNEUMONIA [None]
  - SINUSITIS [None]
  - TRICUSPID VALVE INCOMPETENCE [None]
